FAERS Safety Report 7683184-1 (Version None)
Quarter: 2011Q3

REPORT INFORMATION
  Report Type: 
  Country: None (occurrence: None)
  Receive Date: 20110815
  Receipt Date: 20110808
  Transmission Date: 20111222
  Serious: Yes (Other)
  Sender: FDA-Public Use
  Company Number: US-CEPHALON-US018460

PATIENT
  Sex: Female
  Weight: 58 kg

DRUGS (1)
  1. PROVIGIL [Suspect]
     Indication: CHEMOTHERAPY
     Route: 048
     Dates: start: 20060101, end: 20061010

REACTIONS (3)
  - DIZZINESS [None]
  - BALANCE DISORDER [None]
  - DIPLOPIA [None]
